FAERS Safety Report 19855412 (Version 1)
Quarter: 2021Q3

REPORT INFORMATION
  Report Type: Spontaneous
  Country: FR (occurrence: FR)
  Receive Date: 20210920
  Receipt Date: 20210920
  Transmission Date: 20211014
  Serious: Yes (Hospitalization)
  Sender: FDA-Public Use
  Company Number: FR-ACCORD-238914

PATIENT
  Age: 12 Year
  Sex: Female

DRUGS (2)
  1. IFOSFAMIDE. [Suspect]
     Active Substance: IFOSFAMIDE
     Indication: OSTEOSARCOMA
     Dosage: NOT SPECIFIED
     Route: 042
     Dates: start: 20210208, end: 20210211
  2. ETOPOSIDE. [Suspect]
     Active Substance: ETOPOSIDE
     Indication: OSTEOSARCOMA
     Dosage: NOT SPECIFIED
     Route: 042
     Dates: start: 20210208, end: 20210211

REACTIONS (3)
  - Anaemia [Recovered/Resolved]
  - Aplasia [Recovered/Resolved]
  - Off label use [Unknown]

NARRATIVE: CASE EVENT DATE: 20210215
